FAERS Safety Report 12630918 (Version 1)
Quarter: 2016Q3

REPORT INFORMATION
  Report Type: Spontaneous
  Country: US (occurrence: US)
  Receive Date: 20160808
  Receipt Date: 20160808
  Transmission Date: 20161109
  Serious: No
  Sender: FDA-Public Use
  Company Number: US-PFIZER INC-3027380

PATIENT
  Age: 56 Year
  Sex: Male

DRUGS (22)
  1. VFEND [Concomitant]
     Active Substance: VORICONAZOLE
     Indication: ASPERGILLUS TEST POSITIVE
     Dosage: 1 DF, STRENGTH: 200MG, TOTAL DOSE: 400MG, FREQ: 1 HOUR; INTERVAL: 12
     Route: 048
  2. ASPIRIN /00002701/ [Concomitant]
     Active Substance: ASPIRIN
     Indication: PRODUCT USED FOR UNKNOWN INDICATION
     Dosage: 1 DF, STRENGTH: 81 MG, FREQ: 1 DAY; INTERVAL: 1
     Route: 048
  3. CARVEDILOL. [Concomitant]
     Active Substance: CARVEDILOL
     Indication: PRODUCT USED FOR UNKNOWN INDICATION
     Dosage: 1 DF, STRENGTH: 12.5 MG, WITH FOOD, FREQ: 2 DAY; INTERVAL: 1
     Route: 048
  4. HYDRALAZINE [Concomitant]
     Active Substance: HYDRALAZINE HYDROCHLORIDE
     Indication: PRODUCT USED FOR UNKNOWN INDICATION
     Dosage: 1 DF, STRENGTH: 25 MG, TOTAL DOSE: 75 MG, FREQ: 1 HOUR; INTERVAL: 8
     Route: 048
  5. MULTIVITAMINS [Concomitant]
     Active Substance: VITAMINS
     Indication: PRODUCT USED FOR UNKNOWN INDICATION
     Route: 048
  6. PANTOPRAZOLE SODIUM SESQUIHYDRATE [Concomitant]
     Active Substance: PANTOPRAZOLE SODIUM
     Indication: PRODUCT USED FOR UNKNOWN INDICATION
     Dosage: 1 DF, STRENGTH: 40 MG, FREQ: 1 DAY; INTERVAL: 1
     Route: 048
  7. PRAVASTATIN SODIUM. [Concomitant]
     Active Substance: PRAVASTATIN SODIUM
     Indication: PRODUCT USED FOR UNKNOWN INDICATION
     Dosage: 1 DF, STRENGTH: 40 MG, FREQ: 1 DAY; INTERVAL: 1
     Route: 048
  8. MIRTAZAPINE. [Concomitant]
     Active Substance: MIRTAZAPINE
     Indication: PRODUCT USED FOR UNKNOWN INDICATION
     Dosage: 1 DF, STRENGTH: 45 MG, BEFORE BEDTIME IN THE EVENING, FREQ: 1 DAY; INTERVAL: 1
     Route: 048
  9. HUMULIN NOS [Concomitant]
     Active Substance: INSULIN HUMAN
     Indication: PRODUCT USED FOR UNKNOWN INDICATION
     Dosage: 25 UNITS, FREQ: 2 DAY; INTERVAL:1
     Route: 058
  10. VANCOMYCIN HCL [Suspect]
     Active Substance: VANCOMYCIN HYDROCHLORIDE
     Dosage: 500 MG, TOTAL DOSE: 1000 MG, EVERY 12 HOURS, FREQ: 2 DAY; INTERVAL: 1
     Route: 042
  11. FUROSEMIDE. [Concomitant]
     Active Substance: FUROSEMIDE
     Indication: PRODUCT USED FOR UNKNOWN INDICATION
     Dosage: 1 DF, STRENGTH: 40 MG, TOTAL DOSE: 80 MG, FREQ: 2 DAY; INTERVAL: 1
     Route: 048
  12. VANCOMYCIN HCL [Suspect]
     Active Substance: VANCOMYCIN HYDROCHLORIDE
     Indication: PRODUCT USED FOR UNKNOWN INDICATION
     Dosage: 750 MG, TOTAL DOSE: 1500 MG, FREQ: 2 DAY; INTERVAL: 1
     Route: 042
  13. BUMEX [Suspect]
     Active Substance: BUMETANIDE
     Indication: PRODUCT USED FOR UNKNOWN INDICATION
     Dosage: 1 MG, 2 MG, FREQ: 2 DAY; INTERVAL: 1
     Route: 048
  14. MIRALAX [Concomitant]
     Active Substance: POLYETHYLENE GLYCOL 3350
     Indication: PRODUCT USED FOR UNKNOWN INDICATION
     Dosage: 1 PACKET MIXED WITH 8 OZ OF FLUID, FREQ: 1 DAY; INTERVAL: 1
     Route: 048
  15. AMLODIPINE BESILATE [Concomitant]
     Active Substance: AMLODIPINE BESYLATE
     Indication: PRODUCT USED FOR UNKNOWN INDICATION
     Dosage: 1 DF, STRENGTH: 5 MG, FREQ: 1 DAY; INTERVAL: 1
     Route: 048
  16. OXYCODONE HYDROCHLORIDE. [Concomitant]
     Active Substance: OXYCODONE HYDROCHLORIDE
     Indication: PRODUCT USED FOR UNKNOWN INDICATION
     Dosage: 30 MG, TOTAL DOSE: 60 MG, AS REQUIRED, FREQ: 2 DAY; INTERVAL: 1
     Route: 048
  17. POTASSIUM [Concomitant]
     Active Substance: POTASSIUM
     Indication: PRODUCT USED FOR UNKNOWN INDICATION
     Dosage: 20 MG, FREQ: 1 DAY; INTERVAL: 1
     Route: 048
  18. ALPRAZOLAM. [Concomitant]
     Active Substance: ALPRAZOLAM
     Indication: PRODUCT USED FOR UNKNOWN INDICATION
     Dosage: 1 DF, STRENGTH: 1 MG, FREQ: 2 DAY; INTERVAL: 1
     Route: 048
  19. LINAGLIPTIN [Concomitant]
     Active Substance: LINAGLIPTIN
     Indication: PRODUCT USED FOR UNKNOWN INDICATION
     Dosage: 1 DF, STRENGTH: 5 MG, FREQ: 1 DAY; INTERVAL: 1
     Route: 048
  20. ALBUTEROL /00139501/ [Concomitant]
     Active Substance: ALBUTEROL
     Indication: PRODUCT USED FOR UNKNOWN INDICATION
     Route: 065
  21. IBUPROFEN. [Concomitant]
     Active Substance: IBUPROFEN
     Indication: PRODUCT USED FOR UNKNOWN INDICATION
     Dosage: 1 DF, STRENGTH: 600 MG, TOTAL DOSE: 1800, FREQ: 3 DAY; INTERVAL: 1
     Route: 048
  22. LOSARTAN. [Concomitant]
     Active Substance: LOSARTAN
     Indication: PRODUCT USED FOR UNKNOWN INDICATION
     Dosage: 1 DF, STRENGTH: 25 MG
     Route: 048

REACTIONS (3)
  - Rash [Unknown]
  - Drug level increased [Unknown]
  - Blood creatinine increased [Unknown]
